FAERS Safety Report 8429499-0 (Version None)
Quarter: 2012Q2

REPORT INFORMATION
  Report Type: 
  Country: None (occurrence: None)
  Receive Date: 20120612
  Receipt Date: 20120605
  Transmission Date: 20120825
  Serious: Yes (Death, Life-Threatening)
  Sender: FDA-Public Use
  Company Number: JP-PFIZER INC-2012132505

PATIENT
  Age: 41 Year
  Sex: Male

DRUGS (1)
  1. HEPARIN [Suspect]

REACTIONS (4)
  - THROMBOSIS IN DEVICE [None]
  - HEPARIN-INDUCED THROMBOCYTOPENIA [None]
  - CORONARY BYPASS THROMBOSIS [None]
  - CARDIO-RESPIRATORY ARREST [None]
